FAERS Safety Report 5279815-6 (Version None)
Quarter: 2007Q1

REPORT INFORMATION
  Report Type: 
  Country: None (occurrence: None)
  Receive Date: 20061212
  Receipt Date: 20050307
  Transmission Date: 20070707
  Serious: Yes (Other)
  Sender: FDA-Public Use
  Company Number: 2005UW03611

PATIENT
  Age: 7 Year
  Sex: Female

DRUGS (1)
  1. RHINOCORT AQUA [Suspect]
     Indication: SINUSITIS
     Dosage: 2 SPRAY QD I N
     Route: 055

REACTIONS (2)
  - EYE MOVEMENT DISORDER [None]
  - MEDICATION ERROR [None]
